FAERS Safety Report 9679455 (Version 1)
Quarter: 2013Q4

REPORT INFORMATION
  Report Type: Spontaneous
  Country: US (occurrence: US)
  Receive Date: 20131109
  Receipt Date: 20131109
  Transmission Date: 20140711
  Serious: No
  Sender: FDA-Public Use
  Company Number: US-SANOFI-AVENTIS-2013SA048922

PATIENT
  Age: 66 Year
  Sex: Female

DRUGS (3)
  1. ALLEGRA-D [Suspect]
     Indication: HYPERSENSITIVITY
     Route: 048
     Dates: start: 20130509, end: 20130509
  2. ALLEGRA-D [Suspect]
     Indication: HYPERSENSITIVITY
     Route: 048
     Dates: start: 20130509, end: 20130509
  3. METOPROLOL [Suspect]
     Indication: BLOOD PRESSURE
     Dates: start: 20130509

REACTIONS (5)
  - Malaise [Recovered/Resolved]
  - Wrong technique in drug usage process [Unknown]
  - Asthenia [Recovered/Resolved]
  - Vomiting [Recovered/Resolved]
  - Diarrhoea [Recovered/Resolved]
